FAERS Safety Report 6904126-X (Version None)
Quarter: 2010Q3

REPORT INFORMATION
  Report Type: 
  Country: None (occurrence: None)
  Receive Date: 20100804
  Receipt Date: 20090318
  Transmission Date: 20110219
  Serious: No
  Sender: FDA-Public Use
  Company Number: US-PFIZER INC-2009164267

PATIENT
  Sex: Male

DRUGS (14)
  1. LYRICA [Suspect]
     Dosage: 100 MG, 2X/DAY
     Dates: start: 20090101
  2. OXYCONTIN [Concomitant]
  3. OXYCODONE [Concomitant]
  4. CYMBALTA [Concomitant]
  5. ZOMIG [Concomitant]
  6. AMBIEN [Concomitant]
  7. VALTREX [Concomitant]
  8. PROTONIX [Concomitant]
  9. PREZISTA [Concomitant]
  10. NORVIR [Concomitant]
  11. ATRIPLA [Concomitant]
  12. SOMA [Concomitant]
  13. ELAVIL [Concomitant]
  14. MARINOL [Concomitant]

REACTIONS (5)
  - CONFUSIONAL STATE [None]
  - DISTURBANCE IN ATTENTION [None]
  - FATIGUE [None]
  - IMPAIRED DRIVING ABILITY [None]
  - SOMNOLENCE [None]
